FAERS Safety Report 6456634-6 (Version None)
Quarter: 2009Q4

REPORT INFORMATION
  Report Type: 
  Country: None (occurrence: None)
  Receive Date: 20091124
  Receipt Date: 20091124
  Transmission Date: 20100525
  Serious: Yes (Hospitalization)
  Sender: FDA-Public Use
  Company Number: None

PATIENT
  Sex: Female
  Weight: 45 kg

DRUGS (17)
  1. METHOTREXATE [Suspect]
     Dosage: 45 MG
     Dates: end: 20091020
  2. THIOGUANINE [Suspect]
     Dosage: 1220 MG
     Dates: end: 20091026
  3. VINCRISTINE SULFATE [Suspect]
     Dosage: 7 MG
     Dates: end: 20091026
  4. CYCLOPHOSPHAMIDE [Suspect]
     Dosage: 14-- ,G
     Dates: end: 20091013
  5. CYTARABINE [Suspect]
     Dosage: 840 MG
     Dates: end: 20091023
  6. DEXAMETHASONE [Suspect]
     Dosage: 28 MG
     Dates: end: 20090924
  7. DOXORUBICIN HCL [Suspect]
     Dosage: 105 MG
     Dates: end: 20090918
  8. ATIVAN [Concomitant]
  9. ELAVIL [Concomitant]
  10. ERWINIA [Concomitant]
  11. NITROUS OXIDE [Concomitant]
  12. PERIACTIN [Concomitant]
  13. PROPOFOL [Concomitant]
  14. ULTRAM [Concomitant]
  15. HYDROCODONE [Concomitant]
  16. LEUCOVORIN CALCIUM [Concomitant]
  17. OXYCODONE HCL [Concomitant]

REACTIONS (15)
  - ASTHENIA [None]
  - CONFUSIONAL STATE [None]
  - DECREASED APPETITE [None]
  - DEHYDRATION [None]
  - DISORIENTATION [None]
  - DRUG TOXICITY [None]
  - HEADACHE [None]
  - HEMIPARESIS [None]
  - MEMORY IMPAIRMENT [None]
  - NEUROTOXICITY [None]
  - NEUTROPENIA [None]
  - POTENTIATING DRUG INTERACTION [None]
  - PYREXIA [None]
  - TINNITUS [None]
  - VOMITING [None]
